FAERS Safety Report 8808517 (Version 1)
Quarter: 2012Q4

REPORT INFORMATION
  Report Type: Spontaneous
  Country: US (occurrence: None)
  Receive Date: 20120920
  Receipt Date: 20120920
  Transmission Date: 20130627
  Serious: Yes (Life-Threatening)
  Sender: FDA-Public Use
  Company Number: None

PATIENT
  Age: 43 Year
  Sex: Male
  Weight: 90 kg

DRUGS (1)
  1. POTASSIUM CHLORIDE [Suspect]
     Route: 041
     Dates: start: 20120916, end: 20120917

REACTIONS (1)
  - Blood potassium increased [None]
